FAERS Safety Report 5238028-4 (Version None)
Quarter: 2007Q1

REPORT INFORMATION
  Report Type: 
  Country: None (occurrence: None)
  Receive Date: 20070214
  Receipt Date: 20070202
  Transmission Date: 20070707
  Serious: Yes (Other)
  Sender: FDA-Public Use
  Company Number: JP-PFIZER INC-2007010172

PATIENT
  Age: 75 Year
  Sex: Female

DRUGS (1)
  1. VFEND TABLETS [Suspect]
     Indication: ASPERGILLOSIS
     Dosage: DAILY DOSE:300MG
     Route: 048

REACTIONS (1)
  - FEMORAL NECK FRACTURE [None]
